FAERS Safety Report 24882980 (Version 1)
Quarter: 2025Q1

REPORT INFORMATION
  Report Type: Spontaneous
  Country: US (occurrence: None)
  Receive Date: 20250123
  Receipt Date: 20250123
  Transmission Date: 20250408
  Serious: Yes (Hospitalization)
  Sender: FDA-CTU
  Company Number: None

PATIENT
  Age: 76 Year
  Sex: Female

DRUGS (8)
  1. XELJANZ [Suspect]
     Active Substance: TOFACITINIB CITRATE
     Indication: Rheumatoid arthritis
  2. METOPROLOL TARTRATE [Concomitant]
     Active Substance: METOPROLOL TARTRATE
  3. FOLATE SODIUM [Concomitant]
     Active Substance: FOLATE SODIUM
  4. CALCIUM + D + K [Concomitant]
  5. SYNTHROID [Concomitant]
     Active Substance: LEVOTHYROXINE SODIUM
  6. ANORO ELLIPTA [Concomitant]
     Active Substance: UMECLIDINIUM BROMIDE\VILANTEROL TRIFENATATE
  7. ALBUTEROL [Concomitant]
     Active Substance: ALBUTEROL
  8. URSODIOL [Concomitant]
     Active Substance: URSODIOL

REACTIONS (2)
  - Respiratory syncytial virus infection [None]
  - Intentional dose omission [None]

NARRATIVE: CASE EVENT DATE: 20250122
